FAERS Safety Report 11025405 (Version 3)
Quarter: 2017Q3

REPORT INFORMATION
  Report Type: Spontaneous
  Country: DE (occurrence: DE)
  Receive Date: 20150414
  Receipt Date: 20170728
  Transmission Date: 20171127
  Serious: Yes (Other)
  Sender: FDA-Public Use
  Company Number: DE-SUN PHARMACEUTICAL INDUSTRIES LTD-2015R1-95642

PATIENT
  Age: 34 Year
  Sex: Female

DRUGS (4)
  1. UZARA [Concomitant]
     Indication: VOMITING
     Dosage: UNK
     Route: 065
  2. DIAZEPAM. [Suspect]
     Active Substance: DIAZEPAM
     Indication: PRODUCT USED FOR UNKNOWN INDICATION
     Dosage: UNK
     Route: 065
     Dates: start: 199910
  3. LOPERAMIDE [Suspect]
     Active Substance: LOPERAMIDE
     Indication: PROPHYLAXIS
     Dosage: FOR OVER 10 YEARS, TAKING UP TO 16 MG PER DAY
     Route: 065
     Dates: start: 1989
  4. TANNACOMP [Concomitant]
     Indication: VOMITING
     Dosage: UNK
     Route: 065

REACTIONS (3)
  - Drug abuse [Unknown]
  - Self-medication [Unknown]
  - Drug dependence [Unknown]
